FAERS Safety Report 7903110-7 (Version None)
Quarter: 2011Q4

REPORT INFORMATION
  Report Type: 
  Country: None (occurrence: None)
  Receive Date: 20111107
  Receipt Date: 20111025
  Transmission Date: 20120403
  Serious: Yes (Other)
  Sender: FDA-Public Use
  Company Number: B0760224A

PATIENT
  Sex: Female

DRUGS (1)
  1. DIGOXIN [Suspect]
     Indication: FOETAL ARRHYTHMIA
     Dosage: .25 MG /

REACTIONS (2)
  - PREMATURE BABY [None]
  - FOETAL EXPOSURE DURING PREGNANCY [None]
